FAERS Safety Report 5239856-1 (Version None)
Quarter: 2007Q1

REPORT INFORMATION
  Report Type: 
  Country: None (occurrence: None)
  Receive Date: 20070216
  Receipt Date: 20070212
  Transmission Date: 20070707
  Serious: Yes (Congenital Anomaly, Other)
  Sender: FDA-Public Use
  Company Number: ZA-BOEHRINGER INGELHEIM PHARMACEUTICALS, INC.-2006-BP-13321BP

PATIENT
  Sex: Male

DRUGS (6)
  1. VIRAMUNE [Suspect]
     Indication: HIV INFECTION
     Route: 015
     Dates: start: 20051229
  2. EFAVIRENZ [Suspect]
     Indication: HIV INFECTION
     Route: 015
     Dates: start: 20050223, end: 20051229
  3. STAVUDINE [Suspect]
     Indication: HIV INFECTION
     Route: 015
     Dates: start: 20050223, end: 20051229
  4. LAMIVUDINE [Suspect]
     Indication: HIV INFECTION
     Route: 015
     Dates: start: 20050223, end: 20051229
  5. ZIDOVUDINE [Suspect]
     Indication: HIV INFECTION
     Route: 015
     Dates: start: 20051229
  6. BACTRIM [Concomitant]

REACTIONS (3)
  - CONGENITAL BOWING OF LONG BONES [None]
  - NOSE DEFORMITY [None]
  - TALIPES [None]
